FAERS Safety Report 24078704 (Version 1)
Quarter: 2024Q3

REPORT INFORMATION
  Report Type: Spontaneous
  Country: IT (occurrence: IT)
  Receive Date: 20240711
  Receipt Date: 20240711
  Transmission Date: 20241017
  Serious: Yes (Death)
  Sender: ACCORD
  Company Number: None

PATIENT
  Age: 76 Year
  Sex: Female
  Weight: 45 kg

DRUGS (3)
  1. FLUOROURACIL [Suspect]
     Active Substance: FLUOROURACIL
     Indication: Product used for unknown indication
     Dosage: 250 MG/M2 DAY 1-8 ASSOCIATED WITH LEDERFOLINE 500 MG/M2 DAY 1-8 G 1 REDUCED 50% G8 REDUCED 20%
     Dates: start: 20240508, end: 20240516
  2. OXALIPLATIN [Suspect]
     Active Substance: OXALIPLATIN
     Indication: Oesophageal cancer metastatic
     Dosage: OXALIPLATIN 50 MG/M2 DAY 1-8
     Dates: start: 20240508, end: 20240516
  3. NIVOLUMAB [Suspect]
     Active Substance: NIVOLUMAB
     Indication: Oesophageal cancer metastatic
     Dosage: 240 MG EVERY 14 DAYS, ONCE ADMINISTERED ONLY
     Dates: start: 20240508, end: 20240508

REACTIONS (1)
  - Haematemesis [Fatal]

NARRATIVE: CASE EVENT DATE: 20240602
